FAERS Safety Report 11888893 (Version 1)
Quarter: 2016Q1

REPORT INFORMATION
  Report Type: Spontaneous
  Country: US (occurrence: None)
  Receive Date: 20160104
  Receipt Date: 20160104
  Transmission Date: 20160526
  Serious: Yes (Other)
  Sender: FDA-Public Use
  Company Number: None

PATIENT
  Age: 62 Year
  Sex: Male

DRUGS (6)
  1. BUPROPIAN [Concomitant]
  2. TRAZODONE [Suspect]
     Active Substance: TRAZODONE HYDROCHLORIDE
     Indication: SLEEP DISORDER
     Dosage: 1-2 AS NEEDED TO SLEEP
     Route: 048
     Dates: start: 20090131, end: 20151225
  3. LAMICTAL [Concomitant]
     Active Substance: LAMOTRIGINE
  4. ADDERALL [Concomitant]
     Active Substance: AMPHETAMINE ASPARTATE\AMPHETAMINE SULFATE\DEXTROAMPHETAMINE SACCHARATE\DEXTROAMPHETAMINE SULFATE
  5. SINGULAIR [Concomitant]
     Active Substance: MONTELUKAST SODIUM
  6. FLOWMAX [Concomitant]

REACTIONS (12)
  - Disorientation [None]
  - Tremor [None]
  - Coordination abnormal [None]
  - Abnormal faeces [None]
  - Disturbance in attention [None]
  - Discomfort [None]
  - Malaise [None]
  - Memory impairment [None]
  - Confusional state [None]
  - Vision blurred [None]
  - Chromaturia [None]
  - Impaired driving ability [None]

NARRATIVE: CASE EVENT DATE: 20151224
